FAERS Safety Report 7319573-4 (Version None)
Quarter: 2011Q1

REPORT INFORMATION
  Report Type: 
  Country: None (occurrence: None)
  Receive Date: 20110228
  Receipt Date: 20100525
  Transmission Date: 20110831
  Serious: No
  Sender: FDA-Public Use
  Company Number: A0861240A

PATIENT
  Sex: Female

DRUGS (1)
  1. LAMICTAL [Suspect]
     Indication: ANXIETY
     Dosage: 300MG PER DAY
     Route: 048
     Dates: start: 20091201

REACTIONS (9)
  - MALAISE [None]
  - CRYING [None]
  - FEELING JITTERY [None]
  - THINKING ABNORMAL [None]
  - NAUSEA [None]
  - BACK PAIN [None]
  - REBOUND EFFECT [None]
  - FEELING ABNORMAL [None]
  - WEIGHT DECREASED [None]
